FAERS Safety Report 8514222-1 (Version None)
Quarter: 2012Q3

REPORT INFORMATION
  Report Type: 
  Country: None (occurrence: None)
  Receive Date: 20120717
  Receipt Date: 20120710
  Transmission Date: 20120928
  Serious: Yes (Hospitalization)
  Sender: FDA-Public Use
  Company Number: US-BAYER-201038753NA

PATIENT
  Age: 23 Year
  Sex: Female
  Weight: 65.76 kg

DRUGS (9)
  1. CARAFATE [Concomitant]
     Dosage: UNK
  2. YAZ [Suspect]
     Indication: PRODUCT USED FOR UNKNOWN INDICATION
     Dosage: UNK
     Dates: start: 20061001, end: 20070801
  3. YAZ [Suspect]
     Dates: start: 20090801, end: 20091201
  4. NSAID'S [Concomitant]
     Dosage: UNK
     Dates: start: 20020101
  5. AMOXICILLIN [Concomitant]
     Dosage: UNK
     Dates: start: 20061101
  6. YAZ [Suspect]
  7. CLARITHROMYCIN [Concomitant]
     Dosage: UNK
     Dates: start: 20061101
  8. SULFAMETHOXAZOLE [Concomitant]
     Dosage: UNK
     Dates: start: 20061001
  9. PRILOSEC [Concomitant]

REACTIONS (3)
  - BILIARY DYSKINESIA [None]
  - CHOLECYSTECTOMY [None]
  - ABDOMINAL PAIN [None]
